FAERS Safety Report 16843399 (Version 3)
Quarter: 2021Q1

REPORT INFORMATION
  Report Type: Report from Study
  Country: US (occurrence: US)
  Receive Date: 20190924
  Receipt Date: 20210220
  Transmission Date: 20210419
  Serious: No
  Sender: FDA-Public Use
  Company Number: US-HTU-2019US018444

PATIENT
  Sex: Male

DRUGS (1)
  1. VALCHLOR [Suspect]
     Active Substance: MECHLORETHAMINE
     Indication: CUTANEOUS T-CELL LYMPHOMA
     Dosage: THIN FILM, DAILY
     Route: 061
     Dates: start: 201811

REACTIONS (6)
  - Intentional dose omission [Unknown]
  - Erythema [Unknown]
  - Pain of skin [Not Recovered/Not Resolved]
  - Pruritus [Unknown]
  - Skin exfoliation [Not Recovered/Not Resolved]
  - Skin irritation [Unknown]
